APPROVED DRUG PRODUCT: COLCHICINE
Active Ingredient: COLCHICINE
Strength: 0.6MG
Dosage Form/Route: TABLET;ORAL
Application: A204711 | Product #001 | TE Code: AB
Applicant: AMNEAL PHARMACEUTICALS
Approved: Sep 28, 2016 | RLD: No | RS: No | Type: RX